FAERS Safety Report 4481235-9 (Version None)
Quarter: 2004Q4

REPORT INFORMATION
  Report Type: 
  Country: None (occurrence: None)
  Receive Date: 20040923
  Receipt Date: 20040728
  Transmission Date: 20050328
  Serious: No
  Sender: FDA-Public Use
  Company Number: USA030227610

PATIENT
  Age: 65 Year
  Sex: Female
  Weight: 66 kg

DRUGS (4)
  1. FORTEO [Suspect]
     Indication: OSTEOPOROSIS
     Dosage: 20 UG DAY
     Dates: start: 20030124
  2. THYROID TAB [Concomitant]
  3. PROGESTERONE [Concomitant]
  4. CORTISONE [Concomitant]

REACTIONS (4)
  - INJECTION SITE HAEMORRHAGE [None]
  - PALPITATIONS [None]
  - TACHYCARDIA [None]
  - TREMOR [None]
